FAERS Safety Report 8349410-0 (Version None)
Quarter: 2012Q2

REPORT INFORMATION
  Report Type: 
  Country: None (occurrence: None)
  Receive Date: 20120510
  Receipt Date: 20120502
  Transmission Date: 20120825
  Serious: Yes (Hospitalization)
  Sender: FDA-Public Use
  Company Number: SE-SANOFI-AVENTIS-2012SA030617

PATIENT
  Sex: Male
  Weight: 70 kg

DRUGS (3)
  1. AMLODIPINE [Concomitant]
     Indication: HYPERTENSION
  2. LOSARTAN POTASSIUM [Concomitant]
     Indication: HYPERTENSION
  3. ALFUZOSIN HCL [Suspect]
     Dosage: FORM: DEPOTTAB
     Route: 048
     Dates: start: 20080101

REACTIONS (2)
  - CEREBROVASCULAR ACCIDENT [None]
  - DYSPHAGIA [None]
